FAERS Safety Report 12912889 (Version 1)
Quarter: 2016Q4

REPORT INFORMATION
  Report Type: Report from Study
  Country: DE (occurrence: DE)
  Receive Date: 20161104
  Receipt Date: 20161104
  Transmission Date: 20170207
  Serious: Yes (Hospitalization)
  Sender: FDA-Public Use
  Company Number: DE-PFIZER INC-1316806

PATIENT
  Age: 70 Year
  Sex: Female
  Weight: 71 kg

DRUGS (9)
  1. CLINDAMYCIN. [Concomitant]
     Active Substance: CLINDAMYCIN
     Indication: ANTIBIOTIC PROPHYLAXIS
     Dosage: 300 MG, UNK
     Route: 048
     Dates: start: 20111207, end: 20120223
  2. PANTOPRAZOLE [Concomitant]
     Active Substance: PANTOPRAZOLE SODIUM
     Indication: PROPHYLACTIC CHEMOTHERAPY
     Dosage: 20 MG, DAILY
     Route: 048
     Dates: start: 20111018, end: 20120223
  3. CARBOPLATIN. [Suspect]
     Active Substance: CARBOPLATIN
     Indication: BRONCHIAL CARCINOMA
     Dosage: 360 MG, DAY 1
     Route: 042
     Dates: start: 20111018, end: 20120223
  4. DEXAMETHASONE. [Concomitant]
     Active Substance: DEXAMETHASONE
     Indication: PROPHYLACTIC CHEMOTHERAPY
     Dosage: 8 MG (DAY 1)
     Route: 042
     Dates: start: 20111018, end: 20120223
  5. VINCRISTIN [Suspect]
     Active Substance: VINCRISTINE
     Indication: BRONCHIAL CARCINOMA
     Dosage: 1 MG, DAY 1, 8, 15
     Route: 042
     Dates: start: 20111018, end: 20120223
  6. FILGRASTIM [Suspect]
     Active Substance: FILGRASTIM
     Indication: NEUTROPENIA
     Dosage: 30 IU, UNK
     Route: 058
     Dates: start: 20111207, end: 20111211
  7. DEXAMETHASONE. [Concomitant]
     Active Substance: DEXAMETHASONE
     Dosage: 12 MG (DAY 2)
     Route: 042
     Dates: start: 20111018, end: 20120223
  8. ETOPOSID [Suspect]
     Active Substance: ETOPOSIDE
     Indication: BRONCHIAL CARCINOMA
     Dosage: 245 MG, DAY 1-3
     Route: 042
     Dates: start: 20111018, end: 20120223
  9. ONDANSETRON [Concomitant]
     Active Substance: ONDANSETRON
     Indication: PROPHYLAXIS OF NAUSEA AND VOMITING
     Dosage: 8 MG, DAY 3
     Route: 048
     Dates: start: 20111018, end: 20120223

REACTIONS (1)
  - General physical health deterioration [Recovered/Resolved]

NARRATIVE: CASE EVENT DATE: 20120306
